FAERS Safety Report 16349428 (Version 2)
Quarter: 2020Q3

REPORT INFORMATION
  Report Type: Report from Study
  Country: US (occurrence: US)
  Receive Date: 20190523
  Receipt Date: 20200806
  Transmission Date: 20201102
  Serious: Yes (Hospitalization)
  Sender: FDA-Public Use
  Company Number: US-ACTELION-A-NJ2018-174137

PATIENT
  Sex: Female
  Weight: 75.28 kg

DRUGS (3)
  1. ADCIRCA [Concomitant]
     Active Substance: TADALAFIL
  2. OPSUMIT [Suspect]
     Active Substance: MACITENTAN
     Indication: PULMONARY ARTERIAL HYPERTENSION
     Dosage: 10 MG, QD
     Route: 048
  3. WARFARIN [Concomitant]
     Active Substance: WARFARIN

REACTIONS (7)
  - Pneumonia [Unknown]
  - Cough [Unknown]
  - Productive cough [Unknown]
  - Nasopharyngitis [Unknown]
  - Dyspnoea [Unknown]
  - Fatigue [Unknown]
  - Abdominal discomfort [Unknown]
